FAERS Safety Report 14290935 (Version 3)
Quarter: 2018Q1

REPORT INFORMATION
  Report Type: Spontaneous
  Country: GR (occurrence: GR)
  Receive Date: 20171215
  Receipt Date: 20180104
  Transmission Date: 20180509
  Serious: Yes (Hospitalization)
  Sender: FDA-Public Use
  Company Number: GR-MYLANLABS-2017M1077128

PATIENT
  Age: 48 Year
  Sex: Female

DRUGS (10)
  1. CISPLATIN. [Concomitant]
     Active Substance: CISPLATIN
     Indication: CHONDROSARCOMA
  2. LEVOSIMENDAN [Concomitant]
     Active Substance: LEVOSIMENDAN
     Indication: CARDIOMYOPATHY
     Dosage: UNK
     Route: 065
  3. FUROSEMIDE. [Suspect]
     Active Substance: FUROSEMIDE
     Indication: CARDIAC FAILURE CHRONIC
     Dosage: UNK
  4. DOXORUBICIN [Concomitant]
     Active Substance: DOXORUBICIN
     Indication: CHONDROSARCOMA
  5. DIGOXIN. [Concomitant]
     Active Substance: DIGOXIN
     Indication: PRODUCT USED FOR UNKNOWN INDICATION
  6. IFOSFAMIDE. [Concomitant]
     Active Substance: IFOSFAMIDE
     Indication: CHONDROSARCOMA
  7. EPLERENONE. [Concomitant]
     Active Substance: EPLERENONE
     Indication: PRODUCT USED FOR UNKNOWN INDICATION
  8. RAMIPRIL. [Suspect]
     Active Substance: RAMIPRIL
     Indication: CARDIAC FAILURE CHRONIC
     Dosage: UNK
  9. CARVEDILOL. [Suspect]
     Active Substance: CARVEDILOL
     Indication: CARDIAC FAILURE CHRONIC
     Dosage: UNK
  10. DOPAMINE [Concomitant]
     Active Substance: DOPAMINE\DOPAMINE HYDROCHLORIDE
     Indication: PRODUCT USED FOR UNKNOWN INDICATION
     Dosage: UNK
     Route: 065

REACTIONS (4)
  - Hypotension [Unknown]
  - Acute hepatic failure [Recovered/Resolved]
  - Mental impairment [Unknown]
  - Acute kidney injury [Recovered/Resolved]
